FAERS Safety Report 22539215 (Version 1)
Quarter: 2023Q2

REPORT INFORMATION
  Report Type: Spontaneous
  Country: US (occurrence: US)
  Receive Date: 20230609
  Receipt Date: 20230609
  Transmission Date: 20230721
  Serious: Yes (Other)
  Sender: FDA-Public Use
  Company Number: US-RECKITT BENCKISER HEALTHCARE INT LIMITED-RB-093531-2022

PATIENT
  Age: 2 Year
  Sex: Female

DRUGS (1)
  1. DETTOL (CHLOROXYLENOL) [Suspect]
     Active Substance: CHLOROXYLENOL
     Indication: Pruritus
     Dosage: UNK
     Route: 061
     Dates: start: 20220722, end: 20220722

REACTIONS (5)
  - Skin burning sensation [Not Recovered/Not Resolved]
  - Erythema [Not Recovered/Not Resolved]
  - Skin exfoliation [Not Recovered/Not Resolved]
  - Product use in unapproved indication [Not Recovered/Not Resolved]
  - Expired product administered [Not Recovered/Not Resolved]

NARRATIVE: CASE EVENT DATE: 20220722
